FAERS Safety Report 19383075 (Version 1)
Quarter: 2021Q2

REPORT INFORMATION
  Report Type: Spontaneous
  Country: GB (occurrence: GB)
  Receive Date: 20210607
  Receipt Date: 20210607
  Transmission Date: 20210717
  Serious: Yes (Hospitalization)
  Sender: FDA-Public Use
  Company Number: GB-ALLERGAN-2121242US

PATIENT
  Sex: Female

DRUGS (15)
  1. SUMATRIPTAN. [Concomitant]
     Active Substance: SUMATRIPTAN
  2. VENLAFAXINE [Suspect]
     Active Substance: VENLAFAXINE HYDROCHLORIDE
     Indication: PRODUCT USED FOR UNKNOWN INDICATION
  3. BISACODYL. [Concomitant]
     Active Substance: BISACODYL
  4. FOSTAIR [Concomitant]
     Active Substance: BECLOMETHASONE\FORMOTEROL
  5. LEVOMEPROMAZINE [Concomitant]
     Active Substance: LEVOMEPROMAZINE
  6. RANITIDINE. [Concomitant]
     Active Substance: RANITIDINE
  7. TRAMADOL. [Concomitant]
     Active Substance: TRAMADOL
  8. ZOPICLONE [Concomitant]
     Active Substance: ZOPICLONE
  9. MESALAZINE UNK [Suspect]
     Active Substance: MESALAMINE
     Indication: PRODUCT USED FOR UNKNOWN INDICATION
  10. PARACETAMOL [Concomitant]
     Active Substance: ACETAMINOPHEN
  11. CARBOMER [Concomitant]
     Active Substance: CARBOMER
  12. ACIDEX [Concomitant]
  13. SALBUTAMOL [Concomitant]
     Active Substance: ALBUTEROL
  14. AMITRIPTYLINE [Concomitant]
     Active Substance: AMITRIPTYLINE
  15. IBUPROFEN. [Concomitant]
     Active Substance: IBUPROFEN

REACTIONS (1)
  - Neutropenia [Unknown]
